FAERS Safety Report 17022454 (Version 1)
Quarter: 2019Q4

REPORT INFORMATION
  Report Type: Spontaneous
  Country: US (occurrence: US)
  Receive Date: 20191008
  Receipt Date: 20191008
  Transmission Date: 20200122
  Serious: Yes (Hospitalization)
  Sender: FDA-Public Use
  Company Number: None

PATIENT
  Age: 82 Year
  Sex: Female

DRUGS (1)
  1. IBRANCE [Suspect]
     Active Substance: PALBOCICLIB
     Indication: PANCREATIC DISORDER
     Route: 048
     Dates: start: 20190624, end: 20191007

REACTIONS (2)
  - Fall [None]
  - Therapy cessation [None]

NARRATIVE: CASE EVENT DATE: 20191007
